FAERS Safety Report 4621587-X (Version None)
Quarter: 2005Q1

REPORT INFORMATION
  Report Type: 
  Country: None (occurrence: None)
  Receive Date: 20050329
  Receipt Date: 20050316
  Transmission Date: 20050727
  Serious: Yes (Life-Threatening, Hospitalization)
  Sender: FDA-Public Use
  Company Number: 2005045700

PATIENT
  Age: 74 Year
  Sex: Female
  Weight: 77.1115 kg

DRUGS (3)
  1. DETROL LA [Suspect]
     Indication: INCONTINENCE
     Dosage: 4 MG (4 MG, DAILY), ORAL
     Route: 048
     Dates: start: 20000101
  2. ESOMEPRAZOLE (ESOMEPRAZOLE) [Concomitant]
  3. PAROXETINE HCL [Concomitant]

REACTIONS (5)
  - BLOOD PRESSURE DECREASED [None]
  - CYSTITIS [None]
  - INFECTION [None]
  - LOCALISED INFECTION [None]
  - SEPSIS [None]
